FAERS Safety Report 16953023 (Version 1)
Quarter: 2019Q4

REPORT INFORMATION
  Report Type: Spontaneous
  Country: GB (occurrence: GB)
  Receive Date: 20191023
  Receipt Date: 20191023
  Transmission Date: 20200122
  Serious: Yes (Other)
  Sender: FDA-Public Use
  Company Number: GB-MYLANLABS-2019M1099753

PATIENT
  Age: 54 Year
  Sex: Female
  Weight: 122 kg

DRUGS (8)
  1. TOPIRAMATE. [Concomitant]
     Active Substance: TOPIRAMATE
     Dosage: 1 DOSAGE FORM (EACH NIGHT), QD
     Dates: start: 20190319
  2. OMEPRAZOLE. [Concomitant]
     Active Substance: OMEPRAZOLE
     Dosage: 2 DOSAGE FORM (BEFORE FOOD), QD
     Dates: start: 20190412
  3. FOSTAIR [Concomitant]
     Active Substance: BECLOMETHASONE\FORMOTEROL
     Dosage: 4 DOSAGE FORM, QD (PUFFS)
     Route: 055
     Dates: start: 20190319
  4. CYCLIZINE [Concomitant]
     Active Substance: CYCLIZINE
     Indication: MIGRAINE
     Dosage: UNK (TAKE ONE AT ONSET OF MIGRAINE, MAX 3 TIMES DAILY)
     Dates: start: 20190319
  5. NAPROXEN. [Concomitant]
     Active Substance: NAPROXEN
     Dosage: 2 DOSAGE FORM, QD(AFTER FOOD.USES ONLY OCC.)
     Dates: start: 20190503
  6. BUDESONIDE. [Concomitant]
     Active Substance: BUDESONIDE
     Dosage: 2 DOSAGE FORM, QD (PUFF EACH NOSTRIL)
     Route: 045
     Dates: start: 20190524
  7. MONTELUKAST [Suspect]
     Active Substance: MONTELUKAST SODIUM
     Indication: PRODUCT USED FOR UNKNOWN INDICATION
     Dosage: 10 MILLIGRAM (AT NIGHT), QD
     Route: 065
     Dates: start: 20190816, end: 20190913
  8. RIZATRIPTAN. [Concomitant]
     Active Substance: RIZATRIPTAN
     Dosage: UNK (TAKE ONE AS DIRECTED)
     Dates: start: 20190319

REACTIONS (1)
  - Petit mal epilepsy [Recovered/Resolved]

NARRATIVE: CASE EVENT DATE: 20190917
